FAERS Safety Report 16180917 (Version 3)
Quarter: 2021Q2

REPORT INFORMATION
  Report Type: Spontaneous
  Country: US (occurrence: US)
  Receive Date: 20190410
  Receipt Date: 20210416
  Transmission Date: 20210716
  Serious: Yes (Hospitalization, Other)
  Sender: FDA-Public Use
  Company Number: US-TAKEDA-2019TUS020674

PATIENT
  Sex: Female
  Weight: 69.84 kg

DRUGS (3)
  1. REVLIMID [Concomitant]
     Active Substance: LENALIDOMIDE
     Dosage: UNK
     Route: 065
  2. NINLARO [Suspect]
     Active Substance: IXAZOMIB CITRATE
     Indication: PLASMA CELL MYELOMA
     Dosage: 4 MILLIGRAM
     Route: 048
     Dates: start: 20190307
  3. NINLARO [Suspect]
     Active Substance: IXAZOMIB CITRATE
     Indication: BREAST CANCER METASTATIC

REACTIONS (12)
  - Fatigue [Unknown]
  - Nausea [Unknown]
  - COVID-19 [Unknown]
  - Red blood cell count decreased [Unknown]
  - Vomiting [Unknown]
  - Pneumonia [Unknown]
  - Constipation [Unknown]
  - Thrombosis [Unknown]
  - Haemoglobin decreased [Unknown]
  - Headache [Unknown]
  - Off label use [Unknown]
  - Renal failure [Unknown]
